FAERS Safety Report 10191823 (Version 3)
Quarter: 2014Q3

REPORT INFORMATION
  Report Type: Spontaneous
  Country: DE (occurrence: DE)
  Receive Date: 20140523
  Receipt Date: 20140721
  Transmission Date: 20150326
  Serious: Yes (Death)
  Sender: FDA-Public Use
  Company Number: DE-EISAI INC-E2007-01692-SPO-DE

PATIENT
  Age: 83 Year
  Sex: Female

DRUGS (3)
  1. LEVETIRACETAM. [Concomitant]
     Active Substance: LEVETIRACETAM
     Indication: STATUS EPILEPTICUS
     Dosage: 1500 MG/DAY
     Route: 048
  2. FYCOMPA [Suspect]
     Active Substance: PERAMPANEL
     Indication: STATUS EPILEPTICUS
     Dosage: 6 MG/DAY
     Route: 048
     Dates: start: 20140315, end: 20140319
  3. VALPROAT [Concomitant]
     Active Substance: VALPROATE SODIUM
     Indication: STATUS EPILEPTICUS
     Dosage: 2400 MNG/DAY
     Route: 048

REACTIONS (3)
  - Drug ineffective for unapproved indication [Unknown]
  - Cardiopulmonary failure [Fatal]
  - Off label use [Fatal]
